FAERS Safety Report 26059159 (Version 1)
Quarter: 2025Q4

REPORT INFORMATION
  Report Type: Report from Study
  Country: US (occurrence: US)
  Receive Date: 20251118
  Receipt Date: 20251118
  Transmission Date: 20260117
  Serious: Yes (Other)
  Sender: ABBVIE
  Company Number: US-ABBVIE-6553479

PATIENT
  Sex: Female

DRUGS (1)
  1. SAVELLA [Suspect]
     Active Substance: MILNACIPRAN HYDROCHLORIDE
     Indication: Product used for unknown indication
     Dosage: FORM STRENGTH: 100 MG
     Route: 048

REACTIONS (3)
  - Surgery [Not Recovered/Not Resolved]
  - Mobility decreased [Not Recovered/Not Resolved]
  - Movement disorder [Not Recovered/Not Resolved]
